FAERS Safety Report 4968907-4 (Version None)
Quarter: 2006Q2

REPORT INFORMATION
  Report Type: 
  Country: None (occurrence: None)
  Receive Date: 20060411
  Receipt Date: 20051104
  Transmission Date: 20061013
  Serious: Yes (Hospitalization)
  Sender: FDA-Public Use
  Company Number: US-MERCK-0511USA01176

PATIENT
  Age: 62 Year
  Sex: Male
  Weight: 91 kg

DRUGS (22)
  1. ALLOPURINOL [Concomitant]
     Route: 065
     Dates: start: 19990101
  2. NIFEDIPINE [Concomitant]
     Route: 065
  3. CLONIDINE [Concomitant]
     Route: 065
     Dates: start: 20030512
  4. CELEBREX [Concomitant]
     Route: 065
     Dates: start: 20030512, end: 20031220
  5. PROTONIX [Concomitant]
     Route: 065
  6. FOLIC ACID [Concomitant]
     Route: 065
  7. CELEXA [Concomitant]
     Route: 065
  8. NEURONTIN [Concomitant]
     Route: 065
     Dates: start: 20000101
  9. FAMOTIDINE [Concomitant]
     Route: 065
  10. NALTREXONE [Concomitant]
     Route: 065
  11. TRILEPTAL [Concomitant]
     Route: 065
  12. MIRTAZAPINE [Concomitant]
     Route: 065
  13. ARICEPT [Concomitant]
     Route: 065
  14. LASIX [Concomitant]
     Route: 065
     Dates: start: 20030512
  15. LEVOTHROID [Concomitant]
     Route: 065
     Dates: start: 20030512
  16. NITROGLYCERIN [Concomitant]
     Route: 061
     Dates: start: 20030512
  17. NITROGLYCERIN [Concomitant]
     Route: 060
  18. PREDNISONE [Concomitant]
     Route: 065
     Dates: start: 20030602
  19. ACETAMINOPHEN AND PROPOXYPHENE NAPSYLATE [Concomitant]
     Route: 065
     Dates: start: 20030505
  20. OXYCODONE [Concomitant]
     Route: 065
     Dates: start: 20030408
  21. NIFEDIAC [Concomitant]
     Route: 065
     Dates: start: 20030512
  22. VIOXX [Suspect]
     Indication: ARTHRITIS
     Route: 048
     Dates: start: 20030815, end: 20031220

REACTIONS (26)
  - ACTIVITIES OF DAILY LIVING IMPAIRED [None]
  - ALCOHOL USE [None]
  - APHASIA [None]
  - ASTHMA [None]
  - BACTERIAL INFECTION [None]
  - CAROTID ARTERY OCCLUSION [None]
  - CAROTID ARTERY STENOSIS [None]
  - CEREBRAL INFARCTION [None]
  - CEREBRAL ISCHAEMIA [None]
  - CEREBROVASCULAR ACCIDENT [None]
  - CHEST PAIN [None]
  - DIFFICULTY IN WALKING [None]
  - DISORIENTATION [None]
  - DRUG DOSE OMISSION [None]
  - FALL [None]
  - GAIT DISTURBANCE [None]
  - HEMIPARESIS [None]
  - INCONTINENCE [None]
  - LOSS OF CONSCIOUSNESS [None]
  - MEMORY IMPAIRMENT [None]
  - MOVEMENT DISORDER [None]
  - TRANSIENT ISCHAEMIC ATTACK [None]
  - TREATMENT NONCOMPLIANCE [None]
  - UNRESPONSIVE TO VERBAL STIMULI [None]
  - URINARY INCONTINENCE [None]
  - VERTEBRAL ARTERY OCCLUSION [None]
